FAERS Safety Report 22173263 (Version 1)
Quarter: 2023Q2

REPORT INFORMATION
  Report Type: Spontaneous
  Country: ES (occurrence: ES)
  Receive Date: 20230404
  Receipt Date: 20230404
  Transmission Date: 20230721
  Serious: Yes (Hospitalization)
  Sender: FDA-Public Use
  Company Number: ES-BAYER-2023A043125

PATIENT
  Age: 67 Year
  Sex: Female

DRUGS (4)
  1. ADEMPAS [Suspect]
     Active Substance: RIOCIGUAT
     Indication: Pulmonary arterial hypertension
     Dosage: UNK
     Dates: start: 20230221, end: 20230311
  2. ADEMPAS [Suspect]
     Active Substance: RIOCIGUAT
     Indication: Scleroderma
  3. MACITENTAN [Concomitant]
     Active Substance: MACITENTAN
     Indication: Pulmonary arterial hypertension
     Dosage: 10 MG, UNK
     Route: 048
     Dates: start: 20230221, end: 20230311
  4. MACITENTAN [Concomitant]
     Active Substance: MACITENTAN
     Indication: Scleroderma

REACTIONS (1)
  - Cardiac failure [Recovered/Resolved]

NARRATIVE: CASE EVENT DATE: 20230305
